FAERS Safety Report 5253383-7 (Version None)
Quarter: 2007Q1

REPORT INFORMATION
  Report Type: 
  Country: None (occurrence: None)
  Receive Date: 20070226
  Receipt Date: 20070218
  Transmission Date: 20070707
  Serious: Yes (Other)
  Sender: FDA-Public Use
  Company Number: 2007SP003216

PATIENT
  Age: 64 Year
  Sex: Male

DRUGS (5)
  1. PEG-INTRON [Suspect]
     Indication: HEPATITIS C
     Dosage: SC
     Route: 058
     Dates: start: 20060623
  2. RIBAVIRIN [Suspect]
     Indication: HEPATITIS C
     Dosage: PO
     Route: 048
     Dates: start: 20060623
  3. COSOPT [Concomitant]
  4. NASONEX [Concomitant]
  5. XALATAN [Concomitant]

REACTIONS (2)
  - ANAEMIA [None]
  - PROSTATE CANCER [None]
